FAERS Safety Report 14738321 (Version 1)
Quarter: 2018Q2

REPORT INFORMATION
  Report Type: Spontaneous
  Country: AT (occurrence: AT)
  Receive Date: 20180409
  Receipt Date: 20180409
  Transmission Date: 20180711
  Serious: Yes (Other)
  Sender: FDA-Public Use
  Company Number: AT-DEPOMED, INC.-AT-2018DEP000738

PATIENT
  Age: 61 Year
  Sex: Female
  Weight: 56 kg

DRUGS (1)
  1. DICLOFENAC POTASSIUM. [Suspect]
     Active Substance: DICLOFENAC POTASSIUM
     Indication: MUSCULOSKELETAL PAIN
     Dosage: 50 MG, BID

REACTIONS (1)
  - Hyponatraemic encephalopathy [Recovered/Resolved]
